FAERS Safety Report 5412496-7 (Version None)
Quarter: 2007Q3

REPORT INFORMATION
  Report Type: 
  Country: None (occurrence: None)
  Receive Date: 20070813
  Receipt Date: 20070803
  Transmission Date: 20080115
  Serious: No
  Sender: FDA-Public Use
  Company Number: A0650258A

PATIENT
  Age: 17 Year
  Sex: Male
  Weight: 84 kg

DRUGS (11)
  1. LAMICTAL [Suspect]
     Indication: EPILEPSY
     Dosage: 100MG FOUR TIMES PER DAY
     Route: 048
     Dates: start: 20060814
  2. PHENOBARBITAL TAB [Concomitant]
  3. TEGRETOL [Concomitant]
  4. DILANTIN KAPSEAL [Concomitant]
  5. DIASTAT [Concomitant]
  6. OMNICEF [Concomitant]
  7. AMOXICILLIN [Concomitant]
  8. LEVAQUIN [Concomitant]
  9. PROZAC [Concomitant]
  10. SYNTHROID [Concomitant]
  11. TENEX [Concomitant]

REACTIONS (7)
  - CONVULSION [None]
  - DRUG TOXICITY [None]
  - GAIT DISTURBANCE [None]
  - JOINT STIFFNESS [None]
  - PROSTATITIS [None]
  - THERAPEUTIC RESPONSE DECREASED [None]
  - URINARY INCONTINENCE [None]
